FAERS Safety Report 5117607-9 (Version None)
Quarter: 2006Q3

REPORT INFORMATION
  Report Type: 
  Country: None (occurrence: None)
  Receive Date: 20060926
  Receipt Date: 20060915
  Transmission Date: 20061208
  Serious: Yes (Other)
  Sender: FDA-Public Use
  Company Number: DE200608006147

PATIENT
  Age: 53 Year
  Sex: Female

DRUGS (6)
  1. ZYPREXA [Suspect]
     Indication: DELUSIONAL DISORDER, PERSECUTORY TYPE
     Dosage: 20 MG, DAILY (1/D), ORAL
     Route: 048
     Dates: start: 20060101
  2. LEVOTHYROXINE SODIUM [Concomitant]
  3. TRIAMPUR  (HYDROCHLOROTHIAZIDE, TRIAMTERENE) [Concomitant]
  4. POTASSIUM CHLORIDE [Concomitant]
  5. FAUSTAN (DIAZEPAM) [Concomitant]
  6. METOPROLOL (METOPROLOL) [Concomitant]

REACTIONS (1)
  - MYOGLOBIN BLOOD INCREASED [None]
